FAERS Safety Report 17232726 (Version 1)
Quarter: 2020Q1

REPORT INFORMATION
  Report Type: Spontaneous
  Country: US (occurrence: US)
  Receive Date: 20200103
  Receipt Date: 20200103
  Transmission Date: 20200409
  Serious: Yes (Other)
  Sender: FDA-Public Use
  Company Number: US-SUNOVION-2019SUN005639

PATIENT
  Sex: Male

DRUGS (1)
  1. LATUDA [Suspect]
     Active Substance: LURASIDONE HYDROCHLORIDE
     Indication: BIPOLAR DISORDER
     Dosage: 60 MG, QD
     Route: 048

REACTIONS (4)
  - Post-traumatic stress disorder [Not Recovered/Not Resolved]
  - Spinal operation [Not Recovered/Not Resolved]
  - Persistent depressive disorder [Not Recovered/Not Resolved]
  - Surgery [Not Recovered/Not Resolved]
